FAERS Safety Report 5203976-8 (Version None)
Quarter: 2007Q1

REPORT INFORMATION
  Report Type: 
  Country: None (occurrence: None)
  Receive Date: 20070105
  Receipt Date: 20061222
  Transmission Date: 20070707
  Serious: Yes (Hospitalization)
  Sender: FDA-Public Use
  Company Number: 2006-03184

PATIENT
  Age: 63 Year
  Sex: Male
  Weight: 45 kg

DRUGS (1)
  1. VELCADE [Suspect]
     Indication: MULTIPLE MYELOMA
     Dosage: 1.90, INTRAVENOUS
     Route: 042
     Dates: start: 20060922, end: 20061023

REACTIONS (3)
  - ENDOCARDITIS [None]
  - STAPHYLOCOCCAL INFECTION [None]
  - THROMBOPHLEBITIS [None]
